FAERS Safety Report 23077099 (Version 1)
Quarter: 2023Q4

REPORT INFORMATION
  Report Type: Spontaneous
  Country: CA (occurrence: CA)
  Receive Date: 20231018
  Receipt Date: 20231018
  Transmission Date: 20240110
  Serious: Yes (Death, Life-Threatening, Hospitalization, Disabling, Other)
  Sender: FDA-Public Use
  Company Number: CA-002147023-NVSC2023CA132048

PATIENT
  Age: 80 Year
  Sex: Male
  Weight: 69 kg

DRUGS (55)
  1. AMIODARONE [Suspect]
     Active Substance: AMIODARONE
     Indication: Drug therapy
     Dosage: 150 MG, QD
     Route: 042
  2. AMIODARONE [Suspect]
     Active Substance: AMIODARONE
     Dosage: 150 MG
     Route: 042
  3. AMIODARONE [Suspect]
     Active Substance: AMIODARONE
     Indication: Ventricular fibrillation
     Dosage: 27.78 ML
     Route: 042
  4. AMIODARONE [Suspect]
     Active Substance: AMIODARONE
     Dosage: UNK, QD
     Route: 065
  5. AMIODARONE [Suspect]
     Active Substance: AMIODARONE
     Dosage: UNK
     Route: 042
  6. AMIODARONE HYDROCHLORIDE [Suspect]
     Active Substance: AMIODARONE HYDROCHLORIDE
     Dosage: 1 DOSAGE FORM, QD
     Route: 042
  7. AMIODARONE HYDROCHLORIDE [Suspect]
     Active Substance: AMIODARONE HYDROCHLORIDE
     Indication: Ventricular fibrillation
     Dosage: 150 MG, QD
     Route: 042
     Dates: start: 20200602, end: 20200602
  8. AMIODARONE HYDROCHLORIDE [Suspect]
     Active Substance: AMIODARONE HYDROCHLORIDE
     Dosage: UNK, QD
     Route: 065
  9. AMIODARONE HYDROCHLORIDE [Suspect]
     Active Substance: AMIODARONE HYDROCHLORIDE
     Dosage: UNK, QD (INJECTION)
     Route: 042
  10. AMIODARONE HYDROCHLORIDE [Suspect]
     Active Substance: AMIODARONE HYDROCHLORIDE
     Indication: Drug therapy
     Dosage: UNK
     Route: 065
     Dates: start: 20200603
  11. AMIODARONE HYDROCHLORIDE [Suspect]
     Active Substance: AMIODARONE HYDROCHLORIDE
     Dosage: UNK
     Route: 065
  12. CEFTRIAXONE SODIUM [Suspect]
     Active Substance: CEFTRIAXONE SODIUM
     Indication: Bacterial infection
     Dosage: 2 G, QD
     Route: 042
     Dates: start: 20200530
  13. CEFTRIAXONE SODIUM [Suspect]
     Active Substance: CEFTRIAXONE SODIUM
     Dosage: 2 G
     Route: 065
  14. CEFTRIAXONE SODIUM [Suspect]
     Active Substance: CEFTRIAXONE SODIUM
     Dosage: UNK, QD
     Route: 042
  15. CEFTRIAXONE SODIUM [Suspect]
     Active Substance: CEFTRIAXONE SODIUM
     Dosage: UNK
     Route: 065
  16. ONDANSETRON [Suspect]
     Active Substance: ONDANSETRON
     Dosage: 1 DOSAGE FORM, QD
     Route: 042
  17. ONDANSETRON [Suspect]
     Active Substance: ONDANSETRON
     Dosage: 1 DOSAGE FORM, QD
     Route: 042
  18. ONDANSETRON [Suspect]
     Active Substance: ONDANSETRON
     Dosage: 1 DOSAGE FORM, QD
     Route: 048
  19. ONDANSETRON [Suspect]
     Active Substance: ONDANSETRON
     Dosage: 1 DOSAGE FORM, Q8H
     Route: 042
     Dates: start: 20200601
  20. ONDANSETRON [Suspect]
     Active Substance: ONDANSETRON
     Dosage: 1 DOSAGE FORM
     Route: 042
  21. ONDANSETRON [Suspect]
     Active Substance: ONDANSETRON
     Dosage: 1 DOSAGE FORM
     Route: 042
  22. ONDANSETRON [Suspect]
     Active Substance: ONDANSETRON
     Dosage: 1 DOSAGE FORM
     Route: 042
  23. ONDANSETRON [Suspect]
     Active Substance: ONDANSETRON
     Dosage: 1 DOSAGE FORM
     Route: 065
  24. ONDANSETRON [Suspect]
     Active Substance: ONDANSETRON
     Dosage: 12 MG, QD
     Route: 042
  25. ONDANSETRON [Suspect]
     Active Substance: ONDANSETRON
     Indication: Vomiting
     Dosage: 12 MG, Q18H
     Route: 042
     Dates: start: 20200601
  26. ONDANSETRON [Suspect]
     Active Substance: ONDANSETRON
     Dosage: 12 MG
     Route: 065
  27. ONDANSETRON [Suspect]
     Active Substance: ONDANSETRON
     Dosage: 12 MG
     Route: 065
  28. ONDANSETRON [Suspect]
     Active Substance: ONDANSETRON
     Dosage: 12 DOSAGE FORM
     Route: 042
  29. ONDANSETRON [Suspect]
     Active Substance: ONDANSETRON
     Dosage: 14 DOSAGE FORM
     Route: 042
  30. ONDANSETRON [Suspect]
     Active Substance: ONDANSETRON
     Dosage: 14.14 MG
     Route: 042
  31. ONDANSETRON [Suspect]
     Active Substance: ONDANSETRON
     Dosage: 24 MG, Q8H
     Route: 042
     Dates: start: 20200601
  32. ONDANSETRON [Suspect]
     Active Substance: ONDANSETRON
     Dosage: 24 MG
     Route: 042
  33. ONDANSETRON [Suspect]
     Active Substance: ONDANSETRON
     Dosage: 36 MG, Q8H
     Route: 042
     Dates: start: 20200601
  34. ONDANSETRON [Suspect]
     Active Substance: ONDANSETRON
     Dosage: 36 MG, TID
     Route: 012
  35. ONDANSETRON [Suspect]
     Active Substance: ONDANSETRON
     Dosage: 4 MG, QD
     Route: 042
  36. ONDANSETRON [Suspect]
     Active Substance: ONDANSETRON
     Indication: Nausea
     Dosage: 4 MG, Q8H
     Route: 042
     Dates: start: 20200601
  37. ONDANSETRON [Suspect]
     Active Substance: ONDANSETRON
     Dosage: 4 MG
     Route: 042
  38. ONDANSETRON [Suspect]
     Active Substance: ONDANSETRON
     Dosage: 40 MG, Q8H
     Route: 042
     Dates: start: 20200601
  39. ONDANSETRON [Suspect]
     Active Substance: ONDANSETRON
     Dosage: 40 MG
     Route: 042
  40. ONDANSETRON [Suspect]
     Active Substance: ONDANSETRON
     Dosage: 40 MG
     Route: 065
  41. ONDANSETRON [Suspect]
     Active Substance: ONDANSETRON
     Dosage: 41.14 MG, Q8H
     Route: 042
     Dates: start: 20200601
  42. ONDANSETRON [Suspect]
     Active Substance: ONDANSETRON
     Dosage: 41.14 MG, Q8H
     Route: 042
     Dates: start: 20200601
  43. ONDANSETRON [Suspect]
     Active Substance: ONDANSETRON
     Dosage: 41.14 MG
     Route: 042
     Dates: start: 20200601
  44. ONDANSETRON [Suspect]
     Active Substance: ONDANSETRON
     Dosage: 41.14 MG
     Route: 042
     Dates: start: 20200601
  45. ONDANSETRON [Suspect]
     Active Substance: ONDANSETRON
     Dosage: 41.4 MG
     Route: 042
  46. ONDANSETRON [Suspect]
     Active Substance: ONDANSETRON
     Dosage: 60 MG, QD
     Route: 048
  47. ONDANSETRON [Suspect]
     Active Substance: ONDANSETRON
     Dosage: 8 MG, Q8H
     Route: 042
     Dates: start: 20200601
  48. ONDANSETRON [Suspect]
     Active Substance: ONDANSETRON
     Dosage: 8 MG
     Route: 042
  49. ONDANSETRON [Suspect]
     Active Substance: ONDANSETRON
     Dosage: UNK, TID
     Route: 042
  50. ONDANSETRON [Suspect]
     Active Substance: ONDANSETRON
     Dosage: 14.14 (UNIT NOT SPECIFIED)
     Route: 042
  51. SIMVASTATIN [Suspect]
     Active Substance: SIMVASTATIN
     Indication: Blood cholesterol increased
     Dosage: 40 MG, QD
     Route: 048
     Dates: start: 20200527
  52. SIMVASTATIN [Suspect]
     Active Substance: SIMVASTATIN
     Dosage: 40 MG, QD
     Route: 048
     Dates: start: 20200527
  53. SIMVASTATIN [Suspect]
     Active Substance: SIMVASTATIN
     Indication: Vitamin supplementation
     Dosage: UNK, QD
     Route: 048
  54. SIMVASTATIN [Suspect]
     Active Substance: SIMVASTATIN
     Dosage: UNK
     Route: 065
  55. SIMVASTATIN [Suspect]
     Active Substance: SIMVASTATIN
     Dosage: UNK
     Route: 065

REACTIONS (12)
  - Dry mouth [Fatal]
  - Somnolence [Fatal]
  - Condition aggravated [Fatal]
  - Blood phosphorus increased [Fatal]
  - Myasthenia gravis [Fatal]
  - Blood cholesterol increased [Fatal]
  - Blood uric acid increased [Fatal]
  - Dry mouth [Fatal]
  - Myasthenia gravis [Fatal]
  - Product use in unapproved indication [Fatal]
  - Hyperlipidaemia [Fatal]
  - Gout [Fatal]
